FAERS Safety Report 13503542 (Version 2)
Quarter: 2017Q2

REPORT INFORMATION
  Report Type: Spontaneous
  Country: JP (occurrence: JP)
  Receive Date: 20170502
  Receipt Date: 20170519
  Transmission Date: 20170830
  Serious: Yes (Hospitalization, Other)
  Sender: FDA-Public Use
  Company Number: JP-PFIZER INC-2017184184

PATIENT
  Age: 19 Year
  Sex: Male
  Weight: 71 kg

DRUGS (15)
  1. E KEPPRA [Interacting]
     Active Substance: LEVETIRACETAM
     Dosage: 500 MG, DAILY
     Route: 048
     Dates: start: 20130729
  2. CERCINE [Concomitant]
     Active Substance: DIAZEPAM
  3. SPRYCEL [Concomitant]
     Active Substance: DASATINIB
     Indication: CHRONIC MYELOID LEUKAEMIA
     Dosage: UNK
     Dates: start: 20130426, end: 20130720
  4. MYSLEE [Concomitant]
     Active Substance: ZOLPIDEM TARTRATE
     Dosage: UNK
     Dates: start: 20130511
  5. PHENOBARBITAL. [Concomitant]
     Active Substance: PHENOBARBITAL
     Dosage: UNK
     Route: 048
     Dates: start: 20130718, end: 20130720
  6. ALOXI [Concomitant]
     Active Substance: PALONOSETRON HYDROCHLORIDE
  7. MAGLAX [Concomitant]
     Active Substance: MAGNESIUM OXIDE
     Dosage: UNK
     Dates: start: 20130627, end: 20130722
  8. GRAVIT [Concomitant]
     Dosage: UNK
     Dates: start: 20130501, end: 20130720
  9. SELBEX [Concomitant]
     Active Substance: TEPRENONE
     Dosage: UNK
     Dates: start: 20130517
  10. BIOFERMIN [Concomitant]
     Active Substance: BACILLUS SUBTILIS\LACTOBACILLUS ACIDOPHILUS\STREPTOCOCCUS FAECAIS
  11. METHOTREXATE. [Suspect]
     Active Substance: METHOTREXATE
     Dosage: 1820 MG, DAILY
     Route: 042
     Dates: start: 20130718, end: 20130718
  12. E KEPPRA [Interacting]
     Active Substance: LEVETIRACETAM
     Dosage: 500 MG, 2X/DAY
     Route: 048
     Dates: start: 20130426, end: 20130723
  13. ROZEREM [Concomitant]
     Active Substance: RAMELTEON
     Dosage: UNK
     Dates: start: 20130517, end: 20130724
  14. CYLOCIDE [Concomitant]
     Active Substance: CYTARABINE
     Dosage: UNK
     Dates: start: 20130719, end: 20130719
  15. PRIDOL [Concomitant]
     Active Substance: METHYLPREDNISOLONE SODIUM SUCCINATE
     Dosage: UNK
     Dates: start: 20130718, end: 20130719

REACTIONS (3)
  - Drug interaction [Unknown]
  - Renal disorder [Recovered/Resolved]
  - Blood creatinine increased [Recovering/Resolving]

NARRATIVE: CASE EVENT DATE: 20130718
